FAERS Safety Report 9023537 (Version 1)
Quarter: 2013Q1

REPORT INFORMATION
  Report Type: Spontaneous
  Country: CN (occurrence: CN)
  Receive Date: 20130121
  Receipt Date: 20130121
  Transmission Date: 20140127
  Serious: Yes (Other)
  Sender: FDA-Public Use
  Company Number: CN-ABBOTT-13P-035-1038415-00

PATIENT
  Age: 34 Year
  Sex: Female

DRUGS (1)
  1. ENANTONE [Suspect]
     Indication: ADENOMYOSIS
     Route: 058
     Dates: start: 201211

REACTIONS (1)
  - Vaginal haemorrhage [Unknown]
